FAERS Safety Report 6887462-5 (Version None)
Quarter: 2010Q3

REPORT INFORMATION
  Report Type: 
  Country: None (occurrence: None)
  Receive Date: 20100708
  Receipt Date: 20091208
  Transmission Date: 20110219
  Serious: Yes (Other)
  Sender: FDA-Public Use
  Company Number: 2009308011

PATIENT

DRUGS (1)
  1. CHANTIX [Suspect]

REACTIONS (4)
  - DIZZINESS [None]
  - HOT FLUSH [None]
  - SUICIDAL IDEATION [None]
  - VOMITING [None]
